FAERS Safety Report 9548906 (Version 2)
Quarter: 2013Q4

REPORT INFORMATION
  Report Type: Spontaneous
  Country: TW (occurrence: TW)
  Receive Date: 20130924
  Receipt Date: 20131007
  Transmission Date: 20140711
  Serious: Yes (Hospitalization)
  Sender: FDA-Public Use
  Company Number: TW-AMGEN-TWNSP2013066665

PATIENT
  Age: 56 Year
  Sex: Male

DRUGS (1)
  1. ENBREL [Suspect]
     Indication: RHEUMATOID ARTHRITIS
     Dosage: 25 MG, BIW
     Route: 058
     Dates: start: 20070911, end: 20130610

REACTIONS (4)
  - Pyrexia [Recovered/Resolved]
  - Peptic ulcer [Recovered/Resolved]
  - Pneumonia [Recovered/Resolved]
  - Tuberculosis [Recovered/Resolved]
